FAERS Safety Report 7827277-4 (Version None)
Quarter: 2011Q4

REPORT INFORMATION
  Report Type: 
  Country: None (occurrence: None)
  Receive Date: 20111020
  Receipt Date: 20111009
  Transmission Date: 20120403
  Serious: Yes (Life-Threatening)
  Sender: FDA-Public Use
  Company Number: OM-BRISTOL-MYERS SQUIBB COMPANY-16107872

PATIENT
  Age: 40 Year
  Sex: Male
  Weight: 89 kg

DRUGS (3)
  1. GLUCOPHAGE XR [Suspect]
     Indication: METABOLIC DISORDER
     Dosage: 1DF:1 TABS OF 500MG
     Route: 048
     Dates: start: 20110101
  2. CEFUROXIME [Suspect]
     Indication: RESPIRATORY TRACT INFECTION
     Dosage: STOPPED
     Route: 048
     Dates: start: 20110101
  3. LOSARTAN POTASSIUM [Concomitant]
     Indication: HYPERTENSION

REACTIONS (5)
  - CHROMATURIA [None]
  - DRUG INTERACTION [None]
  - ABASIA [None]
  - UPPER RESPIRATORY TRACT INFECTION [None]
  - HYPERSENSITIVITY [None]
